FAERS Safety Report 5655270-9 (Version None)
Quarter: 2008Q1

REPORT INFORMATION
  Report Type: 
  Country: None (occurrence: None)
  Receive Date: 20080307
  Receipt Date: 20080305
  Transmission Date: 20080703
  Serious: Yes (Other)
  Sender: FDA-Public Use
  Company Number: B0509072A

PATIENT
  Age: 13 Year
  Sex: Male
  Weight: 38 kg

DRUGS (4)
  1. RELENZA [Suspect]
     Indication: INFLUENZA
     Dosage: 10MG TWICE PER DAY
     Route: 048
     Dates: start: 20080208, end: 20080209
  2. MUCODYNE [Concomitant]
     Indication: INFLUENZA
     Dosage: 2.7G PER DAY
     Route: 048
     Dates: start: 20080208, end: 20080216
  3. ASVERIN [Concomitant]
     Indication: INFLUENZA
     Dosage: .6G PER DAY
     Route: 048
     Dates: start: 20080208, end: 20080216
  4. CALONAL [Concomitant]
     Indication: INFLUENZA
     Route: 048
     Dates: start: 20080208, end: 20080209

REACTIONS (6)
  - ABNORMAL BEHAVIOUR [None]
  - APHASIA [None]
  - ILL-DEFINED DISORDER [None]
  - IRRITABILITY [None]
  - PYREXIA [None]
  - SPEECH DISORDER [None]
